FAERS Safety Report 6498758-3 (Version None)
Quarter: 2009Q4

REPORT INFORMATION
  Report Type: 
  Country: None (occurrence: None)
  Receive Date: 20091215
  Receipt Date: 20091111
  Transmission Date: 20100525
  Serious: Yes (Hospitalization, Other)
  Sender: FDA-Public Use
  Company Number: PHEH2009US15993

PATIENT
  Age: 69 Year
  Sex: Female

DRUGS (3)
  1. FORADIL [Suspect]
     Dosage: UNK
  2. ACETYLCYSTEINE [Suspect]
  3. ALBUTEROL [Suspect]

REACTIONS (8)
  - CARDIAC OPERATION [None]
  - COMA [None]
  - CORONARY ARTERY EMBOLISM [None]
  - DIABETES MELLITUS [None]
  - DYSPNOEA [None]
  - EMBOLISM [None]
  - HALLUCINATION [None]
  - JOINT SWELLING [None]
